FAERS Safety Report 7328722-3 (Version None)
Quarter: 2011Q1

REPORT INFORMATION
  Report Type: 
  Country: None (occurrence: None)
  Receive Date: 20110303
  Receipt Date: 20110301
  Transmission Date: 20110831
  Serious: Yes (Other)
  Sender: FDA-Public Use
  Company Number: BE-PFIZER INC-2011045489

PATIENT
  Age: 60 Year
  Sex: Female

DRUGS (5)
  1. OLMETEC [Concomitant]
     Indication: BLOOD PRESSURE
     Dosage: 40 MG, UNK
  2. ZANIDIP [Concomitant]
     Dosage: 10 MG, UNK
  3. PANTOMED [Suspect]
     Indication: COUGH
     Dosage: 40 MG DAILY
     Route: 048
  4. PAROXETINE [Concomitant]
     Dosage: 20 MG, UNK
  5. PANTOMED [Suspect]
     Dosage: 80 MG DAILY

REACTIONS (2)
  - ANOSMIA [None]
  - AGEUSIA [None]
